FAERS Safety Report 5329165-4 (Version None)
Quarter: 2007Q2

REPORT INFORMATION
  Report Type: 
  Country: None (occurrence: None)
  Receive Date: 20070220
  Receipt Date: 20061221
  Transmission Date: 20071010
  Serious: No
  Sender: FDA-Public Use
  Company Number: WAES 0612USA03548

PATIENT
  Age: 62 Year
  Sex: Female

DRUGS (33)
  1. JANUVIA [Suspect]
     Indication: DIABETES MELLITUS
     Dosage: PO
     Route: 048
     Dates: start: 20061115
  2. ACTOS [Concomitant]
  3. ALTACE [Concomitant]
  4. DETROL [Concomitant]
  5. EVOXAC [Concomitant]
  6. LUMIGAN [Concomitant]
  7. MOBIC [Concomitant]
  8. NEURONTIN [Concomitant]
  9. Q-SORB COENZYME Q-10 [Concomitant]
  10. SOMA [Concomitant]
  11. VICODIN [Concomitant]
  12. VYTORIN [Concomitant]
  13. ZYRTEC [Concomitant]
  14. ASCORBIC ACID [Concomitant]
  15. BORAGE OIL [Concomitant]
  16. CHROMIUM PICOLINATE [Concomitant]
  17. DIMETHYL SULFONE [Concomitant]
  18. EICOSAPENTAENOIC ACID [Concomitant]
  19. FLAXSEED [Concomitant]
  20. FOLIC ACID [Concomitant]
  21. GAMOLENIC ACID [Concomitant]
  22. GARLIC [Concomitant]
  23. GRAPE SEEDS [Concomitant]
  24. TRIAMTERENE AND HYDROCHLOROTHIAZIDE [Concomitant]
  25. MALIC ACID [Concomitant]
  26. MEDROXYPROGESTERONE ACETATE [Concomitant]
  27. PEPPER [Concomitant]
  28. SELENIUM SULFIDE [Concomitant]
  29. TEA [Concomitant]
  30. THIOCTIC ACID [Concomitant]
  31. TORSEMIDE [Concomitant]
  32. MULTI-VITAMINS [Concomitant]
  33. ZINC (UNSPECIFIED) [Concomitant]

REACTIONS (1)
  - WEIGHT DECREASED [None]
